FAERS Safety Report 5007534-X (Version None)
Quarter: 2006Q2

REPORT INFORMATION
  Report Type: 
  Country: None (occurrence: None)
  Receive Date: 20060522
  Receipt Date: 20060516
  Transmission Date: 20061013
  Serious: Yes (Hospitalization)
  Sender: FDA-Public Use
  Company Number: 2006CG00882

PATIENT
  Age: 71 Year
  Sex: Male

DRUGS (4)
  1. PULMICORT [Suspect]
     Indication: ASTHMA
     Route: 055
  2. PARACETAMOL [Suspect]
     Route: 048
  3. TAHOR [Suspect]
     Indication: HYPERCHOLESTEROLAEMIA
     Route: 048
  4. COTAREG [Suspect]
     Indication: HYPERTENSION
     Route: 048

REACTIONS (1)
  - HAEMOLYTIC ANAEMIA [None]
